FAERS Safety Report 9402439 (Version 1)
Quarter: 2013Q3

REPORT INFORMATION
  Report Type: Spontaneous
  Country: CA (occurrence: CA)
  Receive Date: 20130716
  Receipt Date: 20130716
  Transmission Date: 20140515
  Serious: Yes (Other)
  Sender: FDA-Public Use
  Company Number: CA-SP-2013-07757

PATIENT
  Sex: Female

DRUGS (1)
  1. TUBERCULIN PPD(M) 5 TU [Suspect]
     Indication: IMMUNISATION
     Dosage: NOT REPORTED
     Route: 065

REACTIONS (3)
  - Convulsion [Unknown]
  - Feeling abnormal [Unknown]
  - Unresponsive to stimuli [Unknown]
